FAERS Safety Report 6246293-X (Version None)
Quarter: 2009Q2

REPORT INFORMATION
  Report Type: 
  Country: None (occurrence: None)
  Receive Date: 20090624
  Receipt Date: 20090609
  Transmission Date: 20091009
  Serious: Yes (Hospitalization, Other)
  Sender: FDA-Public Use
  Company Number: A-CH2009-25764

PATIENT
  Sex: Female
  Weight: 2 kg

DRUGS (4)
  1. TRACLEER [Suspect]
     Indication: DRUG EXPOSURE DURING PREGNANCY
     Dosage: 125 MG, BID, TRANSPLACENTAL ; TRANSPLACENTAL
     Route: 064
  2. OMEPRAZOLE [Suspect]
  3. ASPEGIC BABY(ACETYLSALICYLATE LYSINE, AMINOACETIC ACID) [Suspect]
  4. LEVONORGESTREL [Suspect]
     Indication: DRUG EXPOSURE DURING PREGNANCY

REACTIONS (7)
  - CAESAREAN SECTION [None]
  - DEVELOPMENTAL DELAY [None]
  - FOETAL ARRHYTHMIA [None]
  - FOETAL HYPOKINESIA [None]
  - MATERNAL DRUGS AFFECTING FOETUS [None]
  - NEONATAL RESPIRATORY DISTRESS SYNDROME [None]
  - PREMATURE BABY [None]
